FAERS Safety Report 15738875 (Version 1)
Quarter: 2018Q4

REPORT INFORMATION
  Report Type: Spontaneous
  Country: DE (occurrence: DE)
  Receive Date: 20181219
  Receipt Date: 20181219
  Transmission Date: 20190205
  Serious: Yes (Other)
  Sender: FDA-Public Use
  Company Number: DE-CLINIGEN GROUP PLC/ CLINIGEN HEALTHCARE LTD-DE-CLGN-18-00512

PATIENT
  Sex: Male

DRUGS (3)
  1. ACYCLOVIR. [Suspect]
     Active Substance: ACYCLOVIR
     Indication: HERPES SIMPLEX ENCEPHALITIS
     Route: 042
  2. FOSCARNET SODIUM. [Suspect]
     Active Substance: FOSCARNET SODIUM
     Indication: HERPES SIMPLEX ENCEPHALITIS
     Route: 042
  3. ACYCLOVIR. [Suspect]
     Active Substance: ACYCLOVIR
     Route: 042

REACTIONS (4)
  - Coma [Recovered/Resolved]
  - Respiratory failure [Recovered/Resolved]
  - Acute kidney injury [Recovered/Resolved]
  - Off label use [Unknown]
